FAERS Safety Report 14356756 (Version 1)
Quarter: 2018Q1

REPORT INFORMATION
  Report Type: Spontaneous
  Country: US (occurrence: US)
  Receive Date: 20180104
  Receipt Date: 20180104
  Transmission Date: 20180509
  Serious: Yes (Hospitalization)
  Sender: FDA-Public Use
  Company Number: None

PATIENT
  Sex: Female

DRUGS (31)
  1. METOPROLOL TARTRATE. [Concomitant]
     Active Substance: METOPROLOL TARTRATE
  2. BENICAR [Concomitant]
     Active Substance: OLMESARTAN MEDOXOMIL
  3. FAMOTIDINE. [Concomitant]
     Active Substance: FAMOTIDINE
  4. NITROFURANTN [Concomitant]
     Active Substance: NITROFURANTOIN
  5. OMEPRAZOLE. [Concomitant]
     Active Substance: OMEPRAZOLE
  6. POLYMYXIN B. [Concomitant]
     Active Substance: POLYMYXIN B
  7. MAG-OX [Concomitant]
     Active Substance: MAGNESIUM OXIDE
  8. CEFADROXIL. [Concomitant]
     Active Substance: CEFADROXIL
  9. LANTUS [Concomitant]
     Active Substance: INSULIN GLARGINE
  10. PROGRAF [Suspect]
     Active Substance: TACROLIMUS\TACROLIMUS ANHYDROUS
     Indication: RENAL TRANSPLANT
     Route: 048
     Dates: start: 20060110
  11. INSULIN [Concomitant]
     Active Substance: INSULIN NOS
  12. CIPROFLOXACN [Concomitant]
     Active Substance: CIPROFLOXACIN
  13. HYDROXYZ PAM [Concomitant]
     Active Substance: HYDROXYZINE PAMOATE
  14. TRAMADOL. [Concomitant]
     Active Substance: TRAMADOL
  15. PROCARDIA XL [Concomitant]
     Active Substance: NIFEDIPINE
  16. PANTOPRAZOLE [Concomitant]
     Active Substance: PANTOPRAZOLE
  17. SMZ-TMP [Concomitant]
     Active Substance: SULFAMETHOXAZOLE\TRIMETHOPRIM
  18. PRILOSEC OTC [Concomitant]
     Active Substance: OMEPRAZOLE MAGNESIUM
  19. CLINDAMYCIN. [Concomitant]
     Active Substance: CLINDAMYCIN
  20. LEVAQUIN [Concomitant]
     Active Substance: LEVOFLOXACIN
  21. PROGRAF [Concomitant]
     Active Substance: TACROLIMUS\TACROLIMUS ANHYDROUS
  22. MYCOPHENOLATE [Suspect]
     Active Substance: MYCOPHENOLIC ACID
     Route: 048
     Dates: start: 20170818
  23. BACTRIM [Concomitant]
     Active Substance: SULFAMETHOXAZOLE\TRIMETHOPRIM
  24. HYDROCO/APAP [Concomitant]
     Active Substance: ACETAMINOPHEN\HYDROCODONE
  25. ONETOUGH [Concomitant]
  26. NIFEDIPINE. [Concomitant]
     Active Substance: NIFEDIPINE
  27. LISINOPRIL. [Concomitant]
     Active Substance: LISINOPRIL
  28. NOVOLOG [Concomitant]
     Active Substance: INSULIN ASPART
  29. ALPRAZOLAM. [Concomitant]
     Active Substance: ALPRAZOLAM
  30. FUROSEMIDE. [Concomitant]
     Active Substance: FUROSEMIDE
  31. CONTOUR [Concomitant]

REACTIONS (3)
  - Vomiting [None]
  - Hypertension [None]
  - Nausea [None]
